FAERS Safety Report 6652876-5 (Version None)
Quarter: 2010Q1

REPORT INFORMATION
  Report Type: 
  Country: None (occurrence: None)
  Receive Date: 20100326
  Receipt Date: 20100322
  Transmission Date: 20100710
  Serious: Yes (Death, Hospitalization)
  Sender: FDA-Public Use
  Company Number: US-CELGENEUS-163-21880-10012114

PATIENT
  Sex: Male

DRUGS (3)
  1. REVLIMID [Suspect]
     Indication: MULTIPLE MYELOMA
     Route: 048
     Dates: start: 20091209, end: 20091230
  2. REVLIMID [Suspect]
     Route: 048
     Dates: start: 20091230
  3. VIDAZA [Suspect]
     Route: 065
     Dates: start: 20090309, end: 20090629

REACTIONS (2)
  - RENAL FAILURE [None]
  - SEPTIC SHOCK [None]
